FAERS Safety Report 12865819 (Version 2)
Quarter: 2017Q1

REPORT INFORMATION
  Report Type: Spontaneous
  Country: US (occurrence: US)
  Receive Date: 20161020
  Receipt Date: 20170105
  Transmission Date: 20170428
  Serious: No
  Sender: FDA-Public Use
  Company Number: US-PFIZER INC-2016485328

PATIENT
  Sex: Male

DRUGS (1)
  1. XELJANZ [Suspect]
     Active Substance: TOFACITINIB CITRATE
     Dosage: 5 MG, UNK

REACTIONS (13)
  - Skin discolouration [Unknown]
  - Musculoskeletal pain [Unknown]
  - Balance disorder [Unknown]
  - Memory impairment [Unknown]
  - Joint range of motion decreased [Unknown]
  - Joint stiffness [Unknown]
  - Arthralgia [Unknown]
  - Neck pain [Unknown]
  - Oedema peripheral [Unknown]
  - Dizziness [Unknown]
  - Muscular weakness [Unknown]
  - Joint swelling [Unknown]
  - Gait disturbance [Unknown]
